FAERS Safety Report 5131104-6 (Version None)
Quarter: 2006Q3

REPORT INFORMATION
  Report Type: 
  Country: None (occurrence: None)
  Receive Date: 20060825
  Receipt Date: 20051231
  Transmission Date: 20061208
  Serious: Yes (Life-Threatening)
  Sender: FDA-Public Use
  Company Number: 2005165091

PATIENT
  Age: 46 Year
  Sex: Female
  Weight: 62.1 kg

DRUGS (9)
  1. VFEND [Suspect]
     Indication: PROPHYLAXIS
     Dosage: 400 MG (UNKNOWN) , ORAL
     Route: 048
     Dates: start: 20051019, end: 20051027
  2. GATIFLOXACIN [Suspect]
     Indication: PROPHYLAXIS
     Dosage: 200 MG (UNKNOWN ) , ORAL
     Route: 048
     Dates: start: 20050926, end: 20051031
  3. TEQUIN [Suspect]
     Indication: ILL-DEFINED DISORDER
  4. MAGNESIUM SULFATE [Concomitant]
  5. ACYCLOVIR [Concomitant]
  6. MERREM [Concomitant]
  7. VANCOMYCIN [Concomitant]
  8. POTASSIUM CHLORIDE [Concomitant]
  9. CANCIDAS [Concomitant]

REACTIONS (7)
  - BLOOD MAGNESIUM [None]
  - BLOOD MAGNESIUM DECREASED [None]
  - BLOOD POTASSIUM DECREASED [None]
  - CARDIAC ARREST [None]
  - DRUG INTERACTION [None]
  - ELECTROCARDIOGRAM QT PROLONGED [None]
  - TORSADE DE POINTES [None]
